FAERS Safety Report 17520796 (Version 3)
Quarter: 2020Q4

REPORT INFORMATION
  Report Type: Spontaneous
  Country: US (occurrence: US)
  Receive Date: 20200310
  Receipt Date: 20201109
  Transmission Date: 20210113
  Serious: Yes (Other)
  Sender: FDA-Public Use
  Company Number: US-PFIZER INC-2020102655

PATIENT
  Age: 39 Year
  Sex: Male
  Weight: 67.13 kg

DRUGS (1)
  1. ELELYSO [Suspect]
     Active Substance: TALIGLUCERASE ALFA
     Indication: GAUCHER^S DISEASE
     Dosage: UNK, EVERY 2 WEEKS
     Dates: start: 20200305

REACTIONS (8)
  - Drug hypersensitivity [Unknown]
  - Urticaria [Recovered/Resolved]
  - Ocular hyperaemia [Recovered/Resolved]
  - Renal pain [Recovered/Resolved]
  - Eye irritation [Unknown]
  - Back pain [Recovered/Resolved]
  - Pruritus [Unknown]
  - Eye swelling [Recovered/Resolved]

NARRATIVE: CASE EVENT DATE: 20200305
